FAERS Safety Report 4869558-2 (Version None)
Quarter: 2005Q4

REPORT INFORMATION
  Report Type: 
  Country: None (occurrence: None)
  Receive Date: 20051223
  Receipt Date: 20051220
  Transmission Date: 20060501
  Serious: Yes (Hospitalization)
  Sender: FDA-Public Use
  Company Number: HQWYE838807SEP04

PATIENT
  Age: 56 Year
  Sex: Male

DRUGS (9)
  1. RAPAMUNE [Suspect]
     Indication: PROPHYLAXIS AGAINST TRANSPLANT REJECTION
     Dosage: 2 MG 1X PER 1 DAY ORAL
     Route: 048
     Dates: start: 20040707
  2. CYCLOSPORINE [Suspect]
     Dosage: ORAL; SEE IMAGE
     Route: 048
     Dates: end: 20040827
  3. CYCLOSPORINE [Suspect]
     Dosage: ORAL; SEE IMAGE
     Route: 048
     Dates: start: 20050831, end: 20050831
  4. CYCLOSPORINE [Suspect]
     Dosage: ORAL; SEE IMAGE
     Route: 048
     Dates: start: 20050901
  5. PREDNISONE [Concomitant]
  6. SULFAMETHOXAZOLE + TRIMETHOPRIM [Concomitant]
  7. NYSTATIN [Concomitant]
  8. ATENOLOL [Concomitant]
  9. SIMVASTATIN [Concomitant]

REACTIONS (5)
  - BLOOD LACTATE DEHYDROGENASE INCREASED [None]
  - NEPHROPATHY TOXIC [None]
  - PNEUMONIA [None]
  - RENAL FAILURE ACUTE [None]
  - THERAPY NON-RESPONDER [None]
